FAERS Safety Report 10436061 (Version 1)
Quarter: 2014Q3

REPORT INFORMATION
  Report Type: Spontaneous
  Country: US (occurrence: US)
  Receive Date: 20140908
  Receipt Date: 20140908
  Transmission Date: 20150326
  Serious: No
  Sender: FDA-Public Use
  Company Number: US-ELI_LILLY_AND_COMPANY-US201408010232

PATIENT
  Sex: Male

DRUGS (1)
  1. HUMATROPE [Suspect]
     Active Substance: SOMATROPIN
     Indication: GROWTH HORMONE DEFICIENCY
     Dosage: 1.5 MG, UNKNOWN
     Route: 065
     Dates: start: 201008

REACTIONS (4)
  - Anxiety disorder [Unknown]
  - Incorrect product storage [Unknown]
  - Attention deficit/hyperactivity disorder [Unknown]
  - Drug dose omission [Unknown]
